FAERS Safety Report 8963971 (Version 1)
Quarter: 2012Q4

REPORT INFORMATION
  Report Type: 
  Country: US (occurrence: US)
  Receive Date: 20121214
  Receipt Date: 20121214
  Transmission Date: 20130627
  Serious: Yes (Hospitalization)
  Sender: FDA-Public Use
  Company Number: US-BAYER-2012-129907

PATIENT
  Age: 21 Year
  Sex: Female
  Weight: 72.2 kg

DRUGS (9)
  1. OCELLA [Suspect]
  2. YASMIN [Suspect]
  3. BENZACLIN [Concomitant]
     Dosage: 1.5 UNK, UNK
     Route: 061
  4. NSAID^S [Concomitant]
  5. PROTON PUMP INHIBITORS [Concomitant]
  6. MUSCLE RELAXANTS [Concomitant]
  7. PERCOCET [Concomitant]
  8. ACNE MEDICATION [Concomitant]
  9. IRON [Concomitant]

REACTIONS (1)
  - Pulmonary embolism [None]
